FAERS Safety Report 23049107 (Version 4)
Quarter: 2023Q4

REPORT INFORMATION
  Report Type: Spontaneous
  Country: CH (occurrence: CH)
  Receive Date: 20231010
  Receipt Date: 20231113
  Transmission Date: 20240109
  Serious: No
  Sender: FDA-Public Use
  Company Number: CH-PFIZER INC-PV202300155814

PATIENT
  Sex: Female
  Weight: 70 kg

DRUGS (1)
  1. MEDROXYPROGESTERONE [Suspect]
     Active Substance: MEDROXYPROGESTERONE
     Indication: Contraception
     Dosage: 104MG/0.65ML
     Route: 058

REACTIONS (6)
  - Drug dose omission by device [Unknown]
  - Needle issue [Unknown]
  - Device occlusion [Unknown]
  - Liquid product physical issue [Unknown]
  - Product label confusion [Unknown]
  - Product communication issue [Unknown]

NARRATIVE: CASE EVENT DATE: 20230913
